FAERS Safety Report 7763329-5 (Version None)
Quarter: 2011Q3

REPORT INFORMATION
  Report Type: 
  Country: None (occurrence: None)
  Receive Date: 20110920
  Receipt Date: 20110914
  Transmission Date: 20111222
  Serious: Yes (Other)
  Sender: FDA-Public Use
  Company Number: US-ROXANE LABORATORIES, INC.-2011-RO-01277RO

PATIENT
  Age: 12 Year
  Sex: Male

DRUGS (7)
  1. OXCARBAZEPINE [Suspect]
     Indication: COMPLEX PARTIAL SEIZURES
  2. LEVETIRACETAM [Suspect]
     Indication: COMPLEX PARTIAL SEIZURES
     Dosage: 1500 MG
  3. LEVETIRACETAM [Suspect]
     Dosage: 1400 MG
  4. LEVETIRACETAM [Suspect]
     Dosage: 1700 MG
  5. ZONISAMIDE [Suspect]
     Indication: MYOCLONUS
     Dosage: 200 MG
  6. LEVETIRACETAM [Suspect]
     Indication: MYOCLONUS
     Dosage: 800 MG
  7. VALPROIC ACID [Suspect]
     Indication: MYOCLONUS

REACTIONS (4)
  - FATIGUE [None]
  - DRUG INEFFECTIVE [None]
  - CONDITION AGGRAVATED [None]
  - MYOCLONUS [None]
